FAERS Safety Report 23509567 (Version 4)
Quarter: 2025Q4

REPORT INFORMATION
  Report Type: Other
  Country: US (occurrence: US)
  Receive Date: 20240210
  Receipt Date: 20251031
  Transmission Date: 20260117
  Serious: No
  Sender: TRAVERE THERAPEUTICS
  Company Number: US-TRAVERE-2024TVT00086

PATIENT
  Age: 40 Year
  Sex: Female

DRUGS (3)
  1. FILSPARI [Suspect]
     Active Substance: SPARSENTAN
     Indication: Glomerular vascular disorder
     Route: 048
     Dates: start: 20240130
  2. FILSPARI [Suspect]
     Active Substance: SPARSENTAN
     Indication: Proteinuria
  3. AMLODIPINE [Suspect]
     Active Substance: AMLODIPINE BESYLATE
     Indication: Product used for unknown indication

REACTIONS (4)
  - Product use in unapproved indication [Unknown]
  - Dizziness [Unknown]
  - Abdominal pain lower [Unknown]
  - Hypotension [Unknown]

NARRATIVE: CASE EVENT DATE: 20240130
